FAERS Safety Report 9347909 (Version 1)
Quarter: 2013Q2

REPORT INFORMATION
  Report Type: Spontaneous
  Country: RO (occurrence: RO)
  Receive Date: 20130614
  Receipt Date: 20130614
  Transmission Date: 20140414
  Serious: Yes (Hospitalization)
  Sender: FDA-Public Use
  Company Number: RO-ASTRAZENECA-2013SE41957

PATIENT
  Age: 53 Year
  Sex: Female

DRUGS (7)
  1. SYMBICORT TURBUHALER [Suspect]
     Indication: ASTHMA
     Dosage: 160/4,5MCG 2 PUFFS 2 TIMES A DAY
     Route: 055
     Dates: start: 2012
  2. SYMBICORT TURBUHALER [Suspect]
     Indication: ASTHMA
     Dosage: 160/4,5MCG 2 PUFFS AS NEEDED
     Route: 055
     Dates: start: 2012
  3. CEFUROXINUM [Concomitant]
     Dates: start: 20130214
  4. FLUCONAZOLUM [Concomitant]
     Dates: start: 20130214
  5. AMOXICILINA [Concomitant]
     Indication: UPPER RESPIRATORY TRACT INFECTION
     Dates: start: 20130304
  6. CEFTAZIDINUM [Concomitant]
     Indication: INTERSTITIAL LUNG DISEASE
     Dates: start: 20130319
  7. SOLUMEDROL [Concomitant]
     Indication: INTERSTITIAL LUNG DISEASE
     Dates: start: 20130319

REACTIONS (5)
  - Interstitial lung disease [Recovered/Resolved]
  - Asthma [Unknown]
  - Vasculitic rash [Unknown]
  - Upper respiratory tract infection [Unknown]
  - Candida infection [Unknown]
